FAERS Safety Report 18924274 (Version 6)
Quarter: 2021Q3

REPORT INFORMATION
  Report Type: Report from Study
  Country: US (occurrence: US)
  Receive Date: 20210222
  Receipt Date: 20210927
  Transmission Date: 20211014
  Serious: Yes (Hospitalization, Other)
  Sender: FDA-Public Use
  Company Number: US-TAKEDA-2021TUS011158

PATIENT
  Age: 53 Year
  Sex: Female
  Weight: 58.96 kg

DRUGS (22)
  1. ACETAMINOPHEN. [Concomitant]
     Active Substance: ACETAMINOPHEN
  2. METAMUCIL [Concomitant]
     Active Substance: PLANTAGO SEED
  3. VITAMINS NOS [Concomitant]
     Active Substance: VITAMINS
  4. VITAMIN C ACID [Concomitant]
     Active Substance: ASCORBIC ACID
  5. LEVOTHYROXINE. [Concomitant]
     Active Substance: LEVOTHYROXINE
     Route: 065
  6. THERA?M [Concomitant]
  7. EPINEPHRINE. [Concomitant]
     Active Substance: EPINEPHRINE
  8. TRILEPTAL [Concomitant]
     Active Substance: OXCARBAZEPINE
  9. IBUPROFEN ABECE [Concomitant]
  10. DIPHENHYDRAMINE. [Concomitant]
     Active Substance: DIPHENHYDRAMINE
  11. FLUTICASONE. [Concomitant]
     Active Substance: FLUTICASONE
  12. CARBAMAZEPINE. [Concomitant]
     Active Substance: CARBAMAZEPINE
  13. VENLAFAXINE [Concomitant]
     Active Substance: VENLAFAXINE HYDROCHLORIDE
  14. REGULOID [Concomitant]
     Active Substance: PSYLLIUM HUSK
  15. AVELOX [Concomitant]
     Active Substance: MOXIFLOXACIN HYDROCHLORIDE
  16. BETAMETHASONE. [Concomitant]
     Active Substance: BETAMETHASONE
  17. HUMAN NORMAL IMMUNOGLOBULIN; LIQUID [Suspect]
     Active Substance: HUMAN IMMUNOGLOBULIN G
     Indication: IMMUNODEFICIENCY COMMON VARIABLE
     Dosage: 12 GRAM, 1/WEEK
     Route: 058
     Dates: start: 20130807
  18. SEROQUEL [Concomitant]
     Active Substance: QUETIAPINE FUMARATE
  19. GEODON [Concomitant]
     Active Substance: ZIPRASIDONE HYDROCHLORIDE\ZIPRASIDONE MESYLATE
  20. BUSPIRONE [Concomitant]
     Active Substance: BUSPIRONE HYDROCHLORIDE
  21. LORATADINE. [Concomitant]
     Active Substance: LORATADINE
  22. PROP [Concomitant]

REACTIONS (6)
  - Wound infection [Unknown]
  - Hospitalisation [Unknown]
  - Pneumonia [Unknown]
  - Decubitus ulcer [Unknown]
  - COVID-19 [Not Recovered/Not Resolved]
  - Haemorrhage [Unknown]

NARRATIVE: CASE EVENT DATE: 202103
